FAERS Safety Report 15376631 (Version 4)
Quarter: 2018Q4

REPORT INFORMATION
  Report Type: Spontaneous
  Country: US (occurrence: US)
  Receive Date: 20180912
  Receipt Date: 20181015
  Transmission Date: 20190204
  Serious: No
  Sender: FDA-Public Use
  Company Number: US-AMGEN-USASP2018125921

PATIENT
  Age: 84 Year
  Sex: Male

DRUGS (5)
  1. VIDAZA [Concomitant]
     Active Substance: AZACITIDINE
     Indication: APLASIA PURE RED CELL
     Dosage: UNK
     Dates: start: 20180507, end: 20180511
  2. VIDAZA [Concomitant]
     Active Substance: AZACITIDINE
     Dosage: UNK
     Dates: start: 20180618, end: 20180622
  3. VIDAZA [Concomitant]
     Active Substance: AZACITIDINE
     Dosage: UNK
     Dates: start: 20180910, end: 20180914
  4. PROCRIT [Suspect]
     Active Substance: ERYTHROPOIETIN
     Dosage: 40000 UNIT, Q2WK
     Route: 058
     Dates: start: 20180404
  5. PROCRIT [Suspect]
     Active Substance: ERYTHROPOIETIN
     Indication: MYELODYSPLASTIC SYNDROME
     Dosage: 40000 UNIT, Q4WK
     Route: 058
     Dates: start: 2006, end: 20180404

REACTIONS (3)
  - Drug effect decreased [Unknown]
  - Off label use [Unknown]
  - Haemoglobin decreased [Recovered/Resolved]

NARRATIVE: CASE EVENT DATE: 2006
